FAERS Safety Report 7321832-6 (Version None)
Quarter: 2011Q1

REPORT INFORMATION
  Report Type: 
  Country: None (occurrence: None)
  Receive Date: 20110228
  Receipt Date: 20110215
  Transmission Date: 20110831
  Serious: Yes (Hospitalization)
  Sender: FDA-Public Use
  Company Number: PHHY2011JP12997

PATIENT
  Age: 47 Year
  Sex: Male

DRUGS (2)
  1. CARBOPLATIN [Suspect]
     Dosage: 180 MG/M2, UNK
  2. FLUOROURACIL [Suspect]
     Dosage: 600 MG/M2, UNK

REACTIONS (3)
  - DECREASED APPETITE [None]
  - HEMIANOPIA [None]
  - BRAIN ABSCESS [None]
